FAERS Safety Report 5957421-5 (Version None)
Quarter: 2008Q4

REPORT INFORMATION
  Report Type: 
  Country: None (occurrence: None)
  Receive Date: 20081118
  Receipt Date: 20081110
  Transmission Date: 20090506
  Serious: Yes (Death, Hospitalization)
  Sender: FDA-Public Use
  Company Number: US-GILEAD-2008-0018754

PATIENT
  Sex: Female

DRUGS (17)
  1. LETAIRIS [Suspect]
     Indication: PULMONARY ARTERIAL HYPERTENSION
     Route: 048
     Dates: start: 20070828, end: 20081027
  2. COUMADIN [Concomitant]
  3. ATENOLOL [Concomitant]
  4. SPIRIVA [Concomitant]
  5. ADVAIR DISKUS 100/50 [Concomitant]
  6. PROTONIX [Concomitant]
  7. SENSIPAR [Concomitant]
  8. LANTUS [Concomitant]
  9. NOVOLOG [Concomitant]
  10. ZOCOR [Concomitant]
  11. IMDUR [Concomitant]
  12. MIDODRIN [Concomitant]
  13. SYNTHROID [Concomitant]
  14. MAGNESIUM OXIDE [Concomitant]
  15. PHOSLO [Concomitant]
  16. NEPHROCAPS [Concomitant]
  17. ASPIRIN [Concomitant]

REACTIONS (2)
  - CEREBRAL INFARCTION [None]
  - MULTI-ORGAN FAILURE [None]
